FAERS Safety Report 9294183 (Version 1)
Quarter: 2013Q2

REPORT INFORMATION
  Report Type: Spontaneous
  Country: US (occurrence: US)
  Receive Date: 20130516
  Receipt Date: 20130516
  Transmission Date: 20140414
  Serious: Yes (Other)
  Sender: FDA-Public Use
  Company Number: US-TARO-2013P1005225

PATIENT
  Age: 37 Year
  Sex: Male

DRUGS (10)
  1. WARFARIN SODIUM TABLETS USP 5MG [Suspect]
     Indication: PULMONARY EMBOLISM
     Dates: end: 20130423
  2. WARFARIN SODIUM TABLETS USP 5MG [Suspect]
     Dates: end: 20130423
  3. CARVEDILOL [Concomitant]
  4. PEPCID AC [Concomitant]
  5. DIGOXIN [Concomitant]
  6. MS CONTIN [Concomitant]
  7. KLONOPIN [Concomitant]
  8. LISINOPRIL [Concomitant]
  9. FLEXERIL [Concomitant]
  10. LASIX [Concomitant]

REACTIONS (4)
  - International normalised ratio increased [Not Recovered/Not Resolved]
  - Product quality issue [Unknown]
  - Fall [Recovered/Resolved]
  - Haematoma [Unknown]
